FAERS Safety Report 19332605 (Version 2)
Quarter: 2021Q2

REPORT INFORMATION
  Report Type: Report from Study
  Country: US (occurrence: US)
  Receive Date: 20210529
  Receipt Date: 20210621
  Transmission Date: 20210717
  Serious: Yes (Other)
  Sender: FDA-Public Use
  Company Number: NVSC2021US120749

PATIENT
  Age: 27 Year
  Sex: Female

DRUGS (1)
  1. GILENYA [Suspect]
     Active Substance: FINGOLIMOD HYDROCHLORIDE
     Indication: MULTIPLE SCLEROSIS
     Dosage: 0.5 MG, QD
     Route: 048
     Dates: start: 20181112

REACTIONS (4)
  - Multiple sclerosis relapse [Unknown]
  - Product dose omission issue [Unknown]
  - Urinary tract infection [Unknown]
  - Gait inability [Unknown]

NARRATIVE: CASE EVENT DATE: 20210527
